FAERS Safety Report 7157856-1 (Version None)
Quarter: 2010Q4

REPORT INFORMATION
  Report Type: 
  Country: None (occurrence: None)
  Receive Date: 20101214
  Receipt Date: 20101104
  Transmission Date: 20110411
  Serious: No
  Sender: FDA-Public Use
  Company Number: A0891080A

PATIENT
  Age: 46 Year
  Sex: Male

DRUGS (1)
  1. NICORETTE (MINT) [Suspect]

REACTIONS (3)
  - DYSPNOEA [None]
  - HICCUPS [None]
  - VOMITING [None]
